FAERS Safety Report 5546227-7 (Version None)
Quarter: 2007Q4

REPORT INFORMATION
  Report Type: 
  Country: None (occurrence: None)
  Receive Date: 20071206
  Receipt Date: 20071120
  Transmission Date: 20080405
  Serious: Yes (Other)
  Sender: FDA-Public Use
  Company Number: 2007S1012115

PATIENT
  Age: 66 Year
  Sex: Female

DRUGS (2)
  1. CLARITHROMYCIN [Suspect]
     Indication: SINUSITIS
     Dosage: 250 MG; ORAL
     Route: 048
     Dates: start: 20070510, end: 20070512
  2. OFLOXACIN (OFLOXACIN) (CON.) [Concomitant]

REACTIONS (4)
  - AGEUSIA [None]
  - ANOSMIA [None]
  - EMOTIONAL DISTRESS [None]
  - PAROSMIA [None]
